FAERS Safety Report 8207357-4 (Version None)
Quarter: 2012Q1

REPORT INFORMATION
  Report Type: 
  Country: None (occurrence: None)
  Receive Date: 20120314
  Receipt Date: 20120125
  Transmission Date: 20120608
  Serious: No
  Sender: FDA-Public Use
  Company Number: US-GLAXOSMITHKLINE-A0963113A

PATIENT
  Age: 22 Year
  Sex: Male

DRUGS (1)
  1. NICORETTE (MINT) [Suspect]
     Indication: EX-TOBACCO USER
     Dates: start: 20120101, end: 20120101

REACTIONS (6)
  - EXPIRED DRUG ADMINISTERED [None]
  - MALAISE [None]
  - ADVERSE DRUG REACTION [None]
  - DIARRHOEA [None]
  - VOMITING [None]
  - NAUSEA [None]
